FAERS Safety Report 12803238 (Version 1)
Quarter: 2016Q4

REPORT INFORMATION
  Report Type: Spontaneous
  Country: US (occurrence: US)
  Receive Date: 20161003
  Receipt Date: 20161003
  Transmission Date: 20170207
  Serious: No
  Sender: FDA-Public Use
  Company Number: US-TEVA-697187USA

PATIENT
  Age: 51 Year
  Sex: Female

DRUGS (1)
  1. COPAXONE [Suspect]
     Active Substance: GLATIRAMER ACETATE
     Indication: MULTIPLE SCLEROSIS
     Route: 058
     Dates: start: 20150724, end: 20160825

REACTIONS (3)
  - Dental caries [Unknown]
  - Nuclear magnetic resonance imaging abnormal [Unknown]
  - Injection site fibrosis [Unknown]

NARRATIVE: CASE EVENT DATE: 20160824
